FAERS Safety Report 4703641-7 (Version None)
Quarter: 2005Q2

REPORT INFORMATION
  Report Type: 
  Country: None (occurrence: None)
  Receive Date: 20050208
  Receipt Date: 20050208
  Transmission Date: 20051028
  Serious: Yes (Other)
  Sender: FDA-Public Use
  Company Number: None

PATIENT
  Sex: Female
  Weight: 71.2147 kg

DRUGS (1)
  1. DEXTROAMPHETAMINE [Suspect]
     Indication: ATTENTION DEFICIT/HYPERACTIVITY DISORDER
     Dosage: 15 MG (CR) PO QD  YEARS ; 5 MG PO QD
     Route: 048

REACTIONS (3)
  - RASH [None]
  - STOMACH DISCOMFORT [None]
  - SWOLLEN TONGUE [None]
